FAERS Safety Report 16167089 (Version 1)
Quarter: 2019Q2

REPORT INFORMATION
  Report Type: Spontaneous
  Country: FR (occurrence: FR)
  Receive Date: 20190408
  Receipt Date: 20190408
  Transmission Date: 20190711
  Serious: Yes (Other)
  Sender: FDA-Public Use
  Company Number: FR-B.I. PHARMACEUTICALS,INC./RIDGEFIELD-2019-12-001113

PATIENT
  Sex: Female
  Weight: 61 kg

DRUGS (6)
  1. PROPOFOL. [Suspect]
     Active Substance: PROPOFOL
     Indication: INDUCTION OF ANAESTHESIA
     Dosage: IN TOTAL
     Route: 042
     Dates: start: 20190302, end: 20190302
  2. CHLORURE DE SUXAMETHONIUM [Suspect]
     Active Substance: SUCCINYLCHOLINE CHLORIDE
     Indication: ENDOTRACHEAL INTUBATION
     Dosage: ; IN TOTAL 1 IN 813
     Route: 042
     Dates: start: 20190302, end: 20190302
  3. SUFENTANIL [Suspect]
     Active Substance: SUFENTANIL
     Indication: ANALGESIC THERAPY
     Dosage: ; IN TOTAL, 1 IN 813
     Route: 042
     Dates: start: 20190302, end: 20190302
  4. CATAPRESSAN [Suspect]
     Active Substance: CLONIDINE
     Indication: ANALGESIC THERAPY
     Dosage: ; IN TOTAL, 1 IN 813
     Route: 042
     Dates: start: 20190302, end: 20190302
  5. LIDOCAINE HYDROCHLORIDE ANHYDROUS [Suspect]
     Active Substance: LIDOCAINE HYDROCHLORIDE ANHYDROUS
     Indication: ANALGESIC THERAPY
     Dosage: ; IN TOTAL 1 IN 813
     Route: 042
     Dates: start: 20190302, end: 20190302
  6. KETAMINE [Suspect]
     Active Substance: KETAMINE
     Indication: ANALGESIC THERAPY
     Dosage: ; IN TOTAL 1 IN 813
     Route: 042
     Dates: start: 20190302, end: 20190302

REACTIONS (2)
  - Hypotension [Recovered/Resolved]
  - Flushing [Recovered/Resolved]

NARRATIVE: CASE EVENT DATE: 20190302
